FAERS Safety Report 21811371 (Version 3)
Quarter: 2023Q1

REPORT INFORMATION
  Report Type: Spontaneous
  Country: US (occurrence: US)
  Receive Date: 20230103
  Receipt Date: 20230228
  Transmission Date: 20230417
  Serious: Yes (Hospitalization, Other)
  Sender: FDA-Public Use
  Company Number: US-PFIZER INC-2020449512

PATIENT
  Age: 85 Year
  Sex: Female
  Weight: 66.667 kg

DRUGS (1)
  1. XELJANZ XR [Suspect]
     Active Substance: TOFACITINIB CITRATE
     Dosage: UNK

REACTIONS (3)
  - Tooth extraction [Recovered/Resolved]
  - COVID-19 [Recovered/Resolved]
  - Illness [Unknown]
